FAERS Safety Report 6604245-1 (Version None)
Quarter: 2010Q1

REPORT INFORMATION
  Report Type: 
  Country: None (occurrence: None)
  Receive Date: 20100226
  Receipt Date: 20090720
  Transmission Date: 20100710
  Serious: No
  Sender: FDA-Public Use
  Company Number: A0797641A

PATIENT
  Age: 32 Year
  Sex: Female

DRUGS (4)
  1. LAMICTAL CD [Suspect]
     Indication: BIPOLAR DISORDER
     Dosage: 25MG PER DAY
     Route: 048
     Dates: start: 20090706, end: 20090718
  2. KLONOPIN [Concomitant]
  3. VITAMIN C [Concomitant]
  4. VITAMIN B6 [Concomitant]

REACTIONS (1)
  - LYMPHADENOPATHY [None]
